FAERS Safety Report 7904153-X (Version None)
Quarter: 2011Q4

REPORT INFORMATION
  Report Type: 
  Country: None (occurrence: None)
  Receive Date: 20111109
  Receipt Date: 20111101
  Transmission Date: 20120403
  Serious: Yes (Other)
  Sender: FDA-Public Use
  Company Number: BR-PFIZER INC-2011269035

PATIENT
  Sex: Female

DRUGS (1)
  1. DEPO-PROVERA [Suspect]
     Indication: CONTRACEPTION
     Dosage: 150 MG, UNK
     Route: 030
     Dates: start: 20090101, end: 20090101

REACTIONS (4)
  - HYPERTENSION [None]
  - BLOOD PRESSURE FLUCTUATION [None]
  - FORMICATION [None]
  - FLUID RETENTION [None]
